FAERS Safety Report 7884872-4 (Version None)
Quarter: 2011Q4

REPORT INFORMATION
  Report Type: 
  Country: None (occurrence: None)
  Receive Date: 20111102
  Receipt Date: 20111026
  Transmission Date: 20120403
  Serious: Yes (Other)
  Sender: FDA-Public Use
  Company Number: PHHY2011BR79636

PATIENT
  Sex: Female

DRUGS (6)
  1. EXFORGE [Suspect]
     Indication: HYPERTENSION
     Dosage: 1 DF (160/5 MG) DAILY
     Route: 048
  2. SINVACOR [Concomitant]
     Indication: BLOOD CHOLESTEROL
     Dosage: 0.5 DF(40 MG), A DAY
     Route: 048
  3. ATORVASTATIN [Concomitant]
     Indication: BLOOD CHOLESTEROL
     Dosage: 1 DF(20 MG), A DAY
     Route: 048
  4. EXFORGE [Suspect]
     Dosage: 0.5 DF (160/5 MG) DAILY
     Route: 048
  5. SYNTHROID [Concomitant]
     Indication: THYROID DISORDER
     Dosage: 1 DF(50 MG), A DAY
     Route: 048
  6. ATENOLOL [Concomitant]
     Indication: HYPERTENSION
     Dosage: 1 DF (100 MG), A DAY

REACTIONS (11)
  - ASTHENOPIA [None]
  - HEAD DISCOMFORT [None]
  - BLOOD MAGNESIUM DECREASED [None]
  - TENSION [None]
  - BLOOD PRESSURE DIASTOLIC DECREASED [None]
  - HEADACHE [None]
  - WRONG TECHNIQUE IN DRUG USAGE PROCESS [None]
  - ASTHENIA [None]
  - VASODILATATION [None]
  - BLOOD PRESSURE INADEQUATELY CONTROLLED [None]
  - FATIGUE [None]
